FAERS Safety Report 23358008 (Version 1)
Quarter: 2024Q1

REPORT INFORMATION
  Report Type: Spontaneous
  Country: US (occurrence: None)
  Receive Date: 20240101
  Receipt Date: 20240101
  Transmission Date: 20240410
  Serious: Yes (Other)
  Sender: FDA-Public Use
  Company Number: None

PATIENT
  Age: 68 Year
  Sex: Female
  Weight: 103.5 kg

DRUGS (14)
  1. PAXLOVID [Suspect]
     Active Substance: NIRMATRELVIR\RITONAVIR
     Indication: COVID-19
     Dosage: FREQUENCY : EVERY 12 HOURS;?
     Route: 048
     Dates: start: 20231227, end: 20231230
  2. LEVAQUIN [Suspect]
     Active Substance: LEVOFLOXACIN
  3. CIPROFLOXACIN [Suspect]
     Active Substance: CIPROFLOXACIN
  4. ESOMEPRAZOLE MAGNESIUM [Concomitant]
     Active Substance: ESOMEPRAZOLE MAGNESIUM
  5. C [Concomitant]
  6. CALCIUM [Concomitant]
     Active Substance: CALCIUM
  7. VITAMIN D3 [Concomitant]
     Active Substance: CHOLECALCIFEROL
  8. MULTI VIT [Concomitant]
  9. VITAMIN B COMPLEX [Concomitant]
     Active Substance: CYANOCOBALAMIN\DEXPANTHENOL\NIACINAMIDE\PYRIDOXINE HYDROCHLORIDE\RIBOFLAVIN 5^-PHOSPHATE SODIUM\THIA
  10. e [Concomitant]
  11. CHONDROITIN SULFATE A\GLUCOSAMINE [Concomitant]
     Active Substance: CHONDROITIN SULFATE A\GLUCOSAMINE
  12. golden revive [Concomitant]
  13. FISH OIL [Concomitant]
     Active Substance: FISH OIL
  14. FISH OIL [Concomitant]
     Active Substance: FISH OIL

REACTIONS (8)
  - Hot flush [None]
  - Palpitations [None]
  - Panic attack [None]
  - Abnormal dreams [None]
  - Hallucination [None]
  - Therapy cessation [None]
  - Fatigue [None]
  - Abnormal dreams [None]

NARRATIVE: CASE EVENT DATE: 20231230
